FAERS Safety Report 5519683-8 (Version None)
Quarter: 2007Q4

REPORT INFORMATION
  Report Type: 
  Country: None (occurrence: None)
  Receive Date: 20071116
  Receipt Date: 20071023
  Transmission Date: 20080405
  Serious: Yes (Other)
  Sender: FDA-Public Use
  Company Number: JP-SANOFI-SYNTHELABO-A01200712805

PATIENT
  Age: 19 Year
  Sex: Male

DRUGS (5)
  1. LENDORMIN D [Concomitant]
     Indication: DRUG USE FOR UNKNOWN INDICATION
     Dosage: 0.25 MG
     Route: 048
     Dates: start: 20071022, end: 20071022
  2. MYSLEE [Suspect]
     Indication: SLEEP DISORDER
     Dosage: 10 MG
     Route: 048
     Dates: end: 20071021
  3. MYSLEE [Suspect]
     Dosage: 5 MG
     Route: 048
     Dates: start: 20071022, end: 20071022
  4. RISPERDAL [Suspect]
     Indication: DRUG USE FOR UNKNOWN INDICATION
     Dosage: 1 MG
     Route: 048
     Dates: start: 20071022, end: 20071022
  5. RISPERDAL [Suspect]
     Dosage: 1 ML
     Route: 048
     Dates: start: 20071022, end: 20071022

REACTIONS (1)
  - APNOEIC ATTACK [None]
